FAERS Safety Report 14611783 (Version 2)
Quarter: 2018Q2

REPORT INFORMATION
  Report Type: Spontaneous
  Country: US (occurrence: US)
  Receive Date: 20180308
  Receipt Date: 20180403
  Transmission Date: 20180711
  Serious: No
  Sender: FDA-Public Use
  Company Number: US-PFIZER INC-2018094262

PATIENT
  Age: 52 Year
  Sex: Female

DRUGS (1)
  1. IBRANCE [Suspect]
     Active Substance: PALBOCICLIB
     Indication: BREAST CANCER FEMALE
     Dosage: 125 MG, CYCLIC (1 CASPULE, EVERY DAY FOR 21 DAYS THEN 7 DAYS OFF)
     Route: 048
     Dates: start: 201802

REACTIONS (4)
  - Fatigue [Unknown]
  - Nausea [Unknown]
  - Drug dose omission [Unknown]
  - White blood cell count decreased [Unknown]
